FAERS Safety Report 10554259 (Version 2)
Quarter: 2014Q4

REPORT INFORMATION
  Report Type: Spontaneous
  Country: US (occurrence: US)
  Receive Date: 20141030
  Receipt Date: 20141118
  Transmission Date: 20150529
  Serious: No
  Sender: FDA-Public Use
  Company Number: US-PFIZER INC-2014294683

PATIENT
  Age: 51 Year
  Sex: Female

DRUGS (20)
  1. CALAN [Suspect]
     Active Substance: VERAPAMIL HYDROCHLORIDE
     Dosage: 40 MG, 3X/DAY
     Route: 048
  2. VITAMIN D3 [Concomitant]
     Active Substance: CHOLECALCIFEROL
     Dosage: 2000 IU, 1X/DAY (TAKE 1 TABLET BY MOUTH ONCE DAILY)
     Route: 048
  3. ADVAIR HFA [Concomitant]
     Active Substance: FLUTICASONE PROPIONATE\SALMETEROL XINAFOATE
     Dosage: 1 DF, 2X/DAY
     Route: 045
  4. LASIX [Concomitant]
     Active Substance: FUROSEMIDE
     Dosage: 80 MG, 1X/DAY (TAKE 1 TABLET BY MOUTH EVERY MORNING)
     Route: 048
  5. SINGULAIR [Concomitant]
     Active Substance: MONTELUKAST SODIUM
     Dosage: 10 MG, 1X/DAY (TAKE 1 TABLET BY MOUTH AT BED TIME)
     Route: 048
  6. EFFEXOR [Suspect]
     Active Substance: VENLAFAXINE HYDROCHLORIDE
     Dosage: 225 MG, 2X/DAY (TAKE 3 TABLETS BY MOUTH EVERY 2 TIMES DAILY WITH MEALS)
     Route: 048
  7. ROBAXIN [Concomitant]
     Active Substance: METHOCARBAMOL
     Dosage: 1000 MG, 4X/DAY (500 MG; TAKE 2 TABLETS BY MOUTH 4 TIMES DAILY)
     Route: 048
  8. PERCOCET [Concomitant]
     Active Substance: ACETAMINOPHEN\OXYCODONE HYDROCHLORIDE
     Indication: PAIN
     Dosage: OXYCODONE HYDROCHLORIDE 5 MG AND ACETAMINOPHEN 325 MG (TAKE 1 TABLET BY MOUTH EVERY 6 HOURS IF NEED)
     Route: 048
  9. SIMETHICONE [Concomitant]
     Active Substance: DIMETHICONE\SILICON DIOXIDE\SIMETHICONE
     Indication: FLATULENCE
     Dosage: 180 MG, 4X/DAY (TAKE 1 CAPSULE BY MOUTH 4 TIMES DAILY IF NEEDED)
     Route: 048
  10. DESYREL [Concomitant]
     Active Substance: TRAZODONE HYDROCHLORIDE
     Dosage: 150 MG, 1X/DAY (TAKE 1 TABLET BY MOUTH AT BEDTIME)
     Route: 048
  11. TUMS [Concomitant]
     Active Substance: CALCIUM CARBONATE
     Dosage: 200 MG, 2X/DAY WITH MEALS
     Route: 048
  12. KLONOPIN [Concomitant]
     Active Substance: CLONAZEPAM
     Dosage: 0.5 MG, 3X/DAY (TAKE 1 TABLET BY MOUTH 3 TIMES DAILY)
  13. SYNTHROID [Concomitant]
     Active Substance: LEVOTHYROXINE SODIUM
     Dosage: 75 UG, 1X/DAY (TAKE 1 TABLET BY MOUTH ONCE DAILY)
     Route: 048
  14. WELLBUTRIN XL [Concomitant]
     Active Substance: BUPROPION HYDROCHLORIDE
     Dosage: 300 MG, 1X/DAY (TAKE 1 TABLET BY MOUTH EVERY MORNING)
     Route: 048
  15. IMITREX [Concomitant]
     Active Substance: SUMATRIPTAN\SUMATRIPTAN SUCCINATE
     Indication: MIGRAINE
     Dosage: 25 MG, AS NEEDED (TAKE 1 TABLET BY MOUTH EVERY 2 HOURS IF NEEDED)
     Route: 048
  16. LYRICA [Suspect]
     Active Substance: PREGABALIN
     Dosage: 75 MG, 2X/DAY
     Route: 048
  17. ALBUTEROL. [Concomitant]
     Active Substance: ALBUTEROL
     Dosage: UNK (1-2 PUFFS EVERY 4 HOURS)
  18. LIDODERM [Concomitant]
     Active Substance: LIDOCAINE
     Indication: PAIN
     Dosage: APPLY 1-2 PATCHES ON DRY, CLEAN, HAIRLESS SKIN EVERY 12 HOURS IF NEEDED FOR PAIN (NECK/R ARM)
     Route: 051
  19. OXYCONTIN [Concomitant]
     Active Substance: OXYCODONE HYDROCHLORIDE
     Dosage: 15 MG, 2X/DAY (TAKE 1 TABLET BY MOUTH EVERY 12 HOURS)
     Route: 048
  20. VITAMIN B12 [Concomitant]
     Active Substance: CYANOCOBALAMIN
     Dosage: 1000 UG/ML, MONTHLY (INJECT 0.1 MILLILITER (100 MCG) BY INTRAMUSCULAR ROUTE ONCE A MONTH)
     Route: 030

REACTIONS (1)
  - Stress [Unknown]
